FAERS Safety Report 5323103-6 (Version None)
Quarter: 2007Q2

REPORT INFORMATION
  Report Type: 
  Country: None (occurrence: None)
  Receive Date: 20070507
  Receipt Date: 20070426
  Transmission Date: 20071010
  Serious: Yes (Death)
  Sender: FDA-Public Use
  Company Number: 2007AL001700

PATIENT
  Age: 30 Year
  Sex: Male

DRUGS (2)
  1. HYDROCHLOROTHIAZIDE [Suspect]
     Indication: HYPERTENSION
     Dosage: 50 MG; QD; UNKNOWN
  2. OLANZAPINE [Concomitant]

REACTIONS (5)
  - MYELODYSPLASTIC SYNDROME [None]
  - MYELOID LEUKAEMIA [None]
  - PNEUMONIA [None]
  - REFUSAL OF TREATMENT BY PATIENT [None]
  - STREPTOCOCCAL SEPSIS [None]
